FAERS Safety Report 23108963 (Version 1)
Quarter: 2023Q4

REPORT INFORMATION
  Report Type: Spontaneous
  Country: US (occurrence: None)
  Receive Date: 20231025
  Receipt Date: 20231025
  Transmission Date: 20240109
  Serious: Yes (Life-Threatening)
  Sender: FDA-Public Use
  Company Number: None

PATIENT
  Age: 74 Year
  Sex: Female

DRUGS (1)
  1. FOSAPREPITANT [Suspect]
     Active Substance: FOSAPREPITANT
     Dates: start: 20230901, end: 20230901

REACTIONS (4)
  - Cough [None]
  - Loss of consciousness [None]
  - Seizure like phenomena [None]
  - Infusion related reaction [None]

NARRATIVE: CASE EVENT DATE: 20230901
